APPROVED DRUG PRODUCT: GABAPENTIN
Active Ingredient: GABAPENTIN
Strength: 400MG
Dosage Form/Route: CAPSULE;ORAL
Application: A076537 | Product #003
Applicant: SUN PHARMACEUTICAL INDUSTRIES INC
Approved: Jun 30, 2005 | RLD: No | RS: No | Type: DISCN